FAERS Safety Report 18678111 (Version 1)
Quarter: 2020Q4

REPORT INFORMATION
  Report Type: Other
  Country: CA (occurrence: CA)
  Receive Date: 20201230
  Receipt Date: 20201230
  Transmission Date: 20210114
  Serious: Yes (Hospitalization)
  Sender: FDA-Public Use
  Company Number: CA-CELLTRION INC.-2020CA034552

PATIENT

DRUGS (9)
  1. RITUXIMAB (UNKNOWN) [Suspect]
     Active Substance: RITUXIMAB
     Indication: RHEUMATOID ARTHRITIS
     Dosage: 1000 MILLIGRAM, 1 EVERY 15 DAYS
     Route: 042
  2. ATORVASTATIN [Concomitant]
     Active Substance: ATORVASTATIN
     Route: 065
  3. OXYCODONE [Concomitant]
     Active Substance: OXYCODONE
     Dosage: AS REQUIRED
     Route: 065
  4. ASA [Concomitant]
     Active Substance: ASPIRIN
     Dosage: 81 MILLIGRAM
     Route: 065
  5. CLOPIDOGREL [Concomitant]
     Active Substance: CLOPIDOGREL BISULFATE
     Route: 065
  6. METFORMIN [Concomitant]
     Active Substance: METFORMIN HYDROCHLORIDE
     Route: 065
  7. RAMIPRIL. [Concomitant]
     Active Substance: RAMIPRIL
     Route: 065
  8. ARAVA [Concomitant]
     Active Substance: LEFLUNOMIDE
     Route: 065
  9. BISOPROLOL [Concomitant]
     Active Substance: BISOPROLOL
     Route: 065

REACTIONS (2)
  - Off label use [Unknown]
  - Pneumonia [Unknown]
